FAERS Safety Report 7419698-9 (Version None)
Quarter: 2011Q1

REPORT INFORMATION
  Report Type: 
  Country: None (occurrence: None)
  Receive Date: 20110302
  Receipt Date: 20101206
  Transmission Date: 20110831
  Serious: No
  Sender: FDA-Public Use
  Company Number: 023317

PATIENT
  Sex: Female
  Weight: 88.5 kg

DRUGS (11)
  1. PREVACID [Concomitant]
  2. WELLBUTRIN [Concomitant]
  3. DIAZEPAM [Concomitant]
  4. CIMZIA [Suspect]
     Indication: CROHN'S DISEASE
     Dosage: (400 MG 1X/MONTH SUBCUTANEOUS)
     Route: 058
     Dates: start: 20100601
  5. LOPERAMIDE [Concomitant]
  6. AMITRIPTYLINE [Concomitant]
  7. CYMBALTA [Concomitant]
  8. DICYCLOMINE [Concomitant]
  9. ESTROGEN W/TESTOSTERONE [Concomitant]
  10. ZOCOR [Concomitant]
  11. VITAMIN B-12 [Concomitant]

REACTIONS (4)
  - CROHN'S DISEASE [None]
  - ARTHRALGIA [None]
  - GALLBLADDER POLYP [None]
  - LARGE INTESTINAL ULCER [None]
